FAERS Safety Report 24268329 (Version 1)
Quarter: 2024Q3

REPORT INFORMATION
  Report Type: Spontaneous
  Country: FR (occurrence: FR)
  Receive Date: 20240830
  Receipt Date: 20240830
  Transmission Date: 20241017
  Serious: Yes (Hospitalization)
  Sender: TEVA
  Company Number: None

PATIENT
  Age: 82 Year
  Sex: Male
  Weight: 70.7 kg

DRUGS (3)
  1. RAMIPRIL [Suspect]
     Active Substance: RAMIPRIL
     Indication: Product administration error
     Dosage: RAMIPRIL TEVA SANTE, SCORED TABLET
     Route: 048
     Dates: start: 20240731, end: 20240731
  2. ARIPIPRAZOLE [Suspect]
     Active Substance: ARIPIPRAZOLE
     Indication: Product administration error
     Route: 048
     Dates: start: 20240731, end: 20240731
  3. TRIHEXYPHENIDYL HYDROCHLORIDE [Suspect]
     Active Substance: TRIHEXYPHENIDYL HYDROCHLORIDE
     Indication: Product administration error
     Dosage: ,
     Route: 048
     Dates: start: 20240731, end: 20240731

REACTIONS (3)
  - Coordination abnormal [Recovering/Resolving]
  - Wrong patient received product [Recovering/Resolving]
  - Product administration error [Recovering/Resolving]

NARRATIVE: CASE EVENT DATE: 20240731
